FAERS Safety Report 6686893-6 (Version None)
Quarter: 2010Q2

REPORT INFORMATION
  Report Type: 
  Country: None (occurrence: None)
  Receive Date: 20100419
  Receipt Date: 20100408
  Transmission Date: 20101027
  Serious: Yes (Other)
  Sender: FDA-Public Use
  Company Number: US-JNJFOC-20100403090

PATIENT
  Sex: Female
  Weight: 47.63 kg

DRUGS (4)
  1. REMICADE [Suspect]
     Indication: CROHN'S DISEASE
     Route: 042
  2. PREDNISONE [Concomitant]
     Indication: CROHN'S DISEASE
  3. CALCIUM [Concomitant]
     Indication: OSTEOPENIA
  4. VITAMIN D [Concomitant]
     Indication: OSTEOPENIA
     Dosage: 400 UNITS

REACTIONS (9)
  - ARTHRITIS [None]
  - DOUBLE STRANDED DNA ANTIBODY [None]
  - DRUG EFFECT DECREASED [None]
  - FEEDING DISORDER [None]
  - GASTROINTESTINAL PAIN [None]
  - INTESTINAL RESECTION [None]
  - LUPUS-LIKE SYNDROME [None]
  - PERITONITIS [None]
  - SEPSIS [None]
